FAERS Safety Report 5919545-8 (Version None)
Quarter: 2008Q4

REPORT INFORMATION
  Report Type: 
  Country: None (occurrence: None)
  Receive Date: 20081015
  Receipt Date: 20081006
  Transmission Date: 20090506
  Serious: Yes (Other)
  Sender: FDA-Public Use
  Company Number: JP-WYE-H06363708

PATIENT
  Age: 64 Year
  Sex: Male

DRUGS (11)
  1. ANCARON [Suspect]
     Route: 048
  2. LASIX [Concomitant]
  3. AMOBAN [Concomitant]
  4. ASPIRIN [Concomitant]
  5. MAINTATE [Concomitant]
  6. DIOVAN [Concomitant]
  7. WARFARIN SODIUM [Concomitant]
  8. LIPITOR [Concomitant]
  9. ACTOS [Concomitant]
  10. PLAVIX [Concomitant]
     Dosage: 75 MG
     Route: 065
  11. TAKEPRON [Concomitant]

REACTIONS (2)
  - CONVULSION [None]
  - TREMOR [None]
